FAERS Safety Report 11886167 (Version 4)
Quarter: 2016Q1

REPORT INFORMATION
  Report Type: Spontaneous
  Country: US (occurrence: US)
  Receive Date: 20160104
  Receipt Date: 20160201
  Transmission Date: 20160526
  Serious: No
  Sender: FDA-Public Use
  Company Number: US-PFIZER INC-2015436383

PATIENT
  Age: 69 Year
  Sex: Male
  Weight: 107 kg

DRUGS (7)
  1. FUROSEMIDE. [Concomitant]
     Active Substance: FUROSEMIDE
     Indication: FLUID RETENTION
     Dosage: 40 MG, UNK/ 2 AND A HALF YEARS AGO
  2. LYRICA [Suspect]
     Active Substance: PREGABALIN
     Dosage: 75 MG, 2X/DAY
  3. CLONIDINE. [Concomitant]
     Active Substance: CLONIDINE
     Indication: HYPERTENSION
     Dosage: UNK, AS NEEDED/ STARTED PROBABLY 6 OR 7 YEARS AGO
  4. FUROSEMIDE. [Concomitant]
     Active Substance: FUROSEMIDE
     Indication: BLOOD PRESSURE MEASUREMENT
  5. LYRICA [Suspect]
     Active Substance: PREGABALIN
     Indication: FIBROMYALGIA
     Dosage: 75 MG, 2X/DAY
     Route: 048
  6. LYRICA [Suspect]
     Active Substance: PREGABALIN
     Indication: NEURALGIA
     Dosage: 75 MG, 2X/DAY
  7. HYDROCODONE/ACETAMINOPHEN [Concomitant]
     Active Substance: ACETAMINOPHEN\HYDROCODONE
     Indication: PAIN
     Dosage: 2 DF, DAILY AS NEEDED (HYDROCODONE BITARTRATE 10MG, PARACETAMOL 325MG)
     Route: 048

REACTIONS (6)
  - Activities of daily living impaired [Recovered/Resolved]
  - Amnesia [Recovered/Resolved]
  - Drug effect incomplete [Recovered/Resolved]
  - Hypoaesthesia [Recovered/Resolved]
  - Carpal tunnel syndrome [Recovered/Resolved]
  - Disease recurrence [Recovered/Resolved]
